FAERS Safety Report 8603065-6 (Version None)
Quarter: 2012Q3

REPORT INFORMATION
  Report Type: 
  Country: None (occurrence: None)
  Receive Date: 20120817
  Receipt Date: 20120711
  Transmission Date: 20120928
  Serious: No
  Sender: FDA-Public Use
  Company Number: US-GLAXOSMITHKLINE-A0985302A

PATIENT
  Sex: Male

DRUGS (6)
  1. CALCIUM + D [Concomitant]
     Route: 048
  2. SENIOR MULTIVITAMIN [Concomitant]
  3. JALYN [Concomitant]
     Route: 048
  4. ANDROGEL [Concomitant]
     Route: 061
  5. CO Q 10 [Concomitant]
     Route: 048
  6. VOTRIENT [Suspect]
     Indication: PRODUCT USED FOR UNKNOWN INDICATION
     Dosage: 800MG PER DAY
     Route: 048

REACTIONS (5)
  - FALL [None]
  - MASS [None]
  - HAEMOPTYSIS [None]
  - DISEASE PROGRESSION [None]
  - PROCTITIS [None]
